FAERS Safety Report 9245793 (Version 1)
Quarter: 2013Q2

REPORT INFORMATION
  Report Type: Spontaneous
  Country: US (occurrence: US)
  Receive Date: 20130422
  Receipt Date: 20130422
  Transmission Date: 20140414
  Serious: Yes (Other)
  Sender: FDA-Public Use
  Company Number: US-PFIZER INC-2013124129

PATIENT
  Age: 45 Year
  Sex: Female
  Weight: 58.05 kg

DRUGS (4)
  1. CHANTIX [Suspect]
     Indication: SMOKING CESSATION THERAPY
     Dosage: UNK
  2. CHANTIX [Suspect]
     Dosage: 0.5 MG, UNK
  3. CHANTIX [Suspect]
     Dosage: 1 MG, 2X/DAY
  4. ZANTAC [Concomitant]
     Indication: DYSPEPSIA
     Dosage: UNK

REACTIONS (3)
  - Intentional drug misuse [Unknown]
  - Suicidal ideation [Recovered/Resolved]
  - Nausea [Unknown]
